FAERS Safety Report 4575109-2 (Version None)
Quarter: 2005Q1

REPORT INFORMATION
  Report Type: 
  Country: None (occurrence: None)
  Receive Date: 20050208
  Receipt Date: 20050127
  Transmission Date: 20050727
  Serious: Yes (Hospitalization)
  Sender: FDA-Public Use
  Company Number: CH-SANOFI-SYNTHELABO-F01200500177

PATIENT
  Sex: Male
  Weight: 52.8 kg

DRUGS (5)
  1. DURAGESIC [Concomitant]
     Indication: PAIN
     Dosage: 25 MCG FOR 3 DAYS
     Route: 062
     Dates: start: 20050103
  2. AGOPTON [Concomitant]
     Indication: PROPHYLAXIS AGAINST GASTROINTESTINAL ULCER
     Dosage: 30 MG
     Route: 048
     Dates: start: 20050103
  3. OLFEN [Concomitant]
     Indication: PAIN
     Route: 048
     Dates: start: 20050105
  4. GEMCITABINE [Suspect]
     Dosage: 1900 MG (1200 MG/M2 AS FLAT RATE INFUSION AT 10 MG/M2/MIN ON DAY 1 AND DAY 15, EVERY 4 WEEKS)
     Route: 042
     Dates: start: 20050105, end: 20050105
  5. OXALIPLATIN [Suspect]
     Indication: NON-SMALL CELL LUNG CANCER
     Dosage: 130 MG (85 MG/M2 ON DAY 1 AND DAY 15, EVERY 4 WEEKS)
     Route: 042
     Dates: start: 20050105, end: 20050105

REACTIONS (3)
  - ACUTE ABDOMEN [None]
  - JEJUNAL PERFORATION [None]
  - METASTASES TO SMALL INTESTINE [None]
